FAERS Safety Report 13754653 (Version 3)
Quarter: 2017Q3

REPORT INFORMATION
  Report Type: Spontaneous
  Country: GB (occurrence: GB)
  Receive Date: 20170714
  Receipt Date: 20170809
  Transmission Date: 20171127
  Serious: Yes (Hospitalization, Other)
  Sender: FDA-Public Use
  Company Number: GB-SAOL THERAPEUTICS-2017SAO01174

PATIENT
  Age: 27 Year
  Sex: Female

DRUGS (1)
  1. BACLOFEN. [Suspect]
     Active Substance: BACLOFEN
     Dosage: 1217.5 ?G, \DAY
     Route: 037

REACTIONS (7)
  - Vomiting [Unknown]
  - Aphasia [Unknown]
  - Malaise [Unknown]
  - Muscle spasms [Unknown]
  - Dysphagia [Unknown]
  - Tachycardia [Unknown]
  - Device malfunction [Recovered/Resolved]
